FAERS Safety Report 4360422-4 (Version None)
Quarter: 2004Q2

REPORT INFORMATION
  Report Type: 
  Country: None (occurrence: None)
  Receive Date: 20040514
  Receipt Date: 20040503
  Transmission Date: 20050107
  Serious: Yes (Hospitalization)
  Sender: FDA-Public Use
  Company Number: 200403364

PATIENT
  Age: 39 Year
  Sex: Female

DRUGS (2)
  1. BOTOX [Suspect]
     Indication: SKIN WRINKLING
     Dosage: 25 UNITS PRN IM
     Route: 030
     Dates: start: 20040329
  2. BOTOX [Suspect]
     Indication: SKIN WRINKLING
     Dosage: 15 UNITS PRN IM
     Route: 030
     Dates: start: 20040408

REACTIONS (6)
  - DIZZINESS [None]
  - EYE OEDEMA [None]
  - HEADACHE [None]
  - HYPOAESTHESIA [None]
  - INJECTION SITE SWELLING [None]
  - NASAL OEDEMA [None]
